FAERS Safety Report 7539339-X (Version None)
Quarter: 2011Q2

REPORT INFORMATION
  Report Type: 
  Country: None (occurrence: None)
  Receive Date: 20110610
  Receipt Date: 20110523
  Transmission Date: 20111010
  Serious: No
  Sender: FDA-Public Use
  Company Number: US-JNJFOC-20110510310

PATIENT
  Sex: Male
  Weight: 113.4 kg

DRUGS (2)
  1. INSULIN [Concomitant]
     Indication: DIABETES MELLITUS
     Route: 058
  2. INVEGA [Suspect]
     Indication: AFFECTIVE DISORDER
     Dosage: 1 IN AM AND 1 IN  PM
     Route: 048
     Dates: start: 20100101

REACTIONS (2)
  - URTICARIA [None]
  - PRURITUS [None]
